FAERS Safety Report 4628714-9 (Version None)
Quarter: 2005Q2

REPORT INFORMATION
  Report Type: 
  Country: None (occurrence: None)
  Receive Date: 20050406
  Receipt Date: 20050328
  Transmission Date: 20051028
  Serious: Yes (Hospitalization)
  Sender: FDA-Public Use
  Company Number: TPA2004A01521

PATIENT
  Age: 56 Year
  Sex: Male
  Weight: 116 kg

DRUGS (11)
  1. PIOGLITAZONE HCL [Suspect]
     Indication: GLUCOSE TOLERANCE IMPAIRED
     Dosage: 1 IN 1 D, PER ORAL
     Route: 048
     Dates: start: 20040727
  2. AQUATAB D (PHENYLPROPANOLAMINE W/GUAIFENESIN) [Concomitant]
  3. ASPIRIN [Concomitant]
  4. PREVACID [Concomitant]
  5. ALLEGRA [Concomitant]
  6. ADVAIR DISKUS (SERETIDE MITE) [Concomitant]
  7. FLONASE [Concomitant]
  8. TRIAM/HCTZ (DYAZIDE) [Concomitant]
  9. NORVASC [Concomitant]
  10. CELEBREX [Concomitant]
  11. SYNTHROID [Concomitant]

REACTIONS (2)
  - OEDEMA PERIPHERAL [None]
  - THYROID NEOPLASM [None]
